FAERS Safety Report 7246966-6 (Version None)
Quarter: 2011Q1

REPORT INFORMATION
  Report Type: 
  Country: None (occurrence: None)
  Receive Date: 20110127
  Receipt Date: 20110118
  Transmission Date: 20110831
  Serious: Yes (Hospitalization)
  Sender: FDA-Public Use
  Company Number: CN-ASTRAZENECA-2011SE03104

PATIENT
  Sex: Female

DRUGS (1)
  1. PRILOSEC [Suspect]
     Route: 048
     Dates: start: 20100529

REACTIONS (7)
  - HYPERSENSITIVITY [None]
  - PYREXIA [None]
  - HEPATIC LESION [None]
  - RASH MACULO-PAPULAR [None]
  - DIZZINESS [None]
  - CHILLS [None]
  - ABDOMINAL DISCOMFORT [None]
